FAERS Safety Report 17835710 (Version 2)
Quarter: 2020Q3

REPORT INFORMATION
  Report Type: Report from Study
  Country: MX (occurrence: MX)
  Receive Date: 20200528
  Receipt Date: 20200825
  Transmission Date: 20201103
  Serious: Yes (Hospitalization, Other)
  Sender: FDA-Public Use
  Company Number: MX-ELI_LILLY_AND_COMPANY-MX202005010130

PATIENT
  Age: 85 Year
  Sex: Female

DRUGS (1)
  1. FORTEO [Suspect]
     Active Substance: TERIPARATIDE
     Indication: PRODUCT USED FOR UNKNOWN INDICATION
     Dosage: 20 UG, UNKNOWN
     Route: 058

REACTIONS (4)
  - Hepatitis C [Unknown]
  - Gastrooesophageal reflux disease [Recovering/Resolving]
  - Cholelithiasis [Unknown]
  - Renal disorder [Unknown]

NARRATIVE: CASE EVENT DATE: 20200518
